FAERS Safety Report 8183263-9 (Version None)
Quarter: 2012Q1

REPORT INFORMATION
  Report Type: 
  Country: None (occurrence: None)
  Receive Date: 20120127
  Receipt Date: 20110207
  Transmission Date: 20120608
  Serious: Yes (Hospitalization)
  Sender: FDA-Public Use
  Company Number: 1000007579

PATIENT
  Age: 43 Year
  Sex: Male
  Weight: 155.5838 kg

DRUGS (22)
  1. FENTANYL [Concomitant]
  2. CLOBETASOL (CLOBETASOL) [Concomitant]
  3. DILAUDUD (HYDROMORPHONE HYDROCHLORIDE) (HYDROMORPHONE HYDROCHLORIDE) [Concomitant]
  4. XANAX [Concomitant]
  5. AMBIEN [Concomitant]
  6. CYMBALTA (DULOXETINE HYDROCHLORIDE) DULOXETINE HYDROCHLORIDE) [Concomitant]
  7. MOBIC [Concomitant]
  8. BYSTOLIC [Suspect]
     Indication: HYPERTENSION
     Dosage: 5 MG (5 MG, 1 IN 1 D), ORAL, 10 MG (10 MG, 1 IN 1 D), ORAL, 5 MG (5 MG, 1 IN 1 D), ORAL
     Route: 048
     Dates: start: 20081119, end: 20081201
  9. BYSTOLIC [Suspect]
     Indication: HYPERTENSION
     Dosage: 5 MG (5 MG, 1 IN 1 D), ORAL, 10 MG (10 MG, 1 IN 1 D), ORAL, 5 MG (5 MG, 1 IN 1 D), ORAL
     Route: 048
     Dates: start: 20081202, end: 20090526
  10. BYSTOLIC [Suspect]
     Indication: HYPERTENSION
     Dosage: 5 MG (5 MG, 1 IN 1 D), ORAL, 10 MG (10 MG, 1 IN 1 D), ORAL, 5 MG (5 MG, 1 IN 1 D), ORAL
     Route: 048
     Dates: start: 20090528, end: 20090604
  11. NEURONTIN [Concomitant]
  12. ZAROXOLYN (METOLAZONE) (METOLAZONE) [Concomitant]
  13. MIDRIN (ISOCOM) (ISOCOM) [Concomitant]
  14. SOMA (CARISOPRODOL) (CARISOPRODOL) [Concomitant]
  15. TARKA (UDRAMIL) (UDRAMIL) [Concomitant]
  16. VICODIN (VICODIN) (VICODIN) [Concomitant]
  17. ULTRAM (TRAMADOL HYDROCHLORIDE) (TRAMADOL HYDROCHLORIDE) [Concomitant]
  18. ALEVE (NAPROXEN SODIUM) (NAPROXEN SODIUM) [Concomitant]
  19. BYSTOLIC [Suspect]
     Indication: HYPERTENSION
     Dosage: 10 MG (10 MG, 1 IN 1 D), ORAL
     Route: 048
     Dates: start: 20090605, end: 20090616
  20. AMBIEN CR (ZOLPIDEM TARTRATE) (ZOLPIDEM TARTRATE) [Concomitant]
  21. GLUCOPHAGE (METFORMIN HYDROCHLORIDE) (METFORMIN HYDROCHLORIDE) [Concomitant]
  22. LOTREL (LOTREL) (LOTREL) [Concomitant]

REACTIONS (13)
  - SYNCOPE [None]
  - DEPRESSION [None]
  - LYMPHADENITIS [None]
  - HEADACHE [None]
  - ERYTHEMA [None]
  - BRADYCARDIA [None]
  - FALL [None]
  - STAPHYLOCOCCAL INFECTION [None]
  - UNEVALUABLE EVENT [None]
  - SKELETAL INJURY [None]
  - ONYCHALGIA [None]
  - CELLULITIS [None]
  - AMNESIA [None]
